FAERS Safety Report 9378732 (Version 2)
Quarter: 2013Q2

REPORT INFORMATION
  Report Type: Spontaneous
  Country: US (occurrence: None)
  Receive Date: 20130626
  Receipt Date: 20130626
  Transmission Date: 20140414
  Serious: Yes (Hospitalization, Other)
  Sender: FDA-Public Use
  Company Number: ADR-2013-01058

PATIENT
  Age: 17 Year
  Sex: Male

DRUGS (1)
  1. LIORESAL INTRATHECAL (BACLOFEN INJECTION) [Suspect]

REACTIONS (7)
  - Medical device complication [None]
  - Contusion [None]
  - Swelling [None]
  - Abdominal distension [None]
  - Pneumonia [None]
  - Convulsion [None]
  - Urticaria [None]
